FAERS Safety Report 11135770 (Version 1)
Quarter: 2015Q2

REPORT INFORMATION
  Report Type: Spontaneous
  Country: US (occurrence: None)
  Receive Date: 20150522
  Receipt Date: 20150522
  Transmission Date: 20150821
  Serious: Yes (Hospitalization)
  Sender: FDA-Public Use
  Company Number: None

PATIENT
  Age: 81 Year
  Sex: Female
  Weight: 41.9 kg

DRUGS (4)
  1. CAPECITABINE. [Suspect]
     Active Substance: CAPECITABINE
     Indication: NEOPLASM MALIGNANT
     Dosage: 1 PILL
     Route: 048
     Dates: start: 20150211, end: 20150515
  2. CAPECITABINE. [Suspect]
     Active Substance: CAPECITABINE
     Indication: METASTASIS
     Dosage: 1 PILL
     Route: 048
     Dates: start: 20150211, end: 20150515
  3. CYCLOPHOSPHAMIDE. [Suspect]
     Active Substance: CYCLOPHOSPHAMIDE
     Indication: BREAST CANCER METASTATIC
     Dosage: 1 PILL
     Route: 048
     Dates: start: 20150211, end: 20150515
  4. LAPATINIB [Concomitant]
     Active Substance: LAPATINIB

REACTIONS (5)
  - Central nervous system lesion [None]
  - Breast cancer metastatic [None]
  - VIIth nerve paralysis [None]
  - Hemiparesis [None]
  - Malignant neoplasm progression [None]

NARRATIVE: CASE EVENT DATE: 20150516
